FAERS Safety Report 5365427-2 (Version None)
Quarter: 2007Q2

REPORT INFORMATION
  Report Type: 
  Country: None (occurrence: None)
  Receive Date: 20070621
  Receipt Date: 20070615
  Transmission Date: 20071010
  Serious: Yes (Life-Threatening)
  Sender: FDA-Public Use
  Company Number: JP-GENENTECH-237755

PATIENT
  Sex: Male
  Weight: 70 kg

DRUGS (5)
  1. RITUXAN [Suspect]
     Indication: NON-HODGKIN'S LYMPHOMA
     Dosage: 500 MG, QD
     Dates: start: 20030806
  2. ADRIAMYCIN PFS [Concomitant]
     Indication: NON-HODGKIN'S LYMPHOMA
     Dosage: 90 MG, QD
     Route: 042
     Dates: start: 20030806
  3. ONCOVIN [Concomitant]
     Indication: NON-HODGKIN'S LYMPHOMA
     Dosage: 2 MG, UNK
     Route: 042
     Dates: start: 20030806
  4. ENDOXAN [Concomitant]
     Indication: NON-HODGKIN'S LYMPHOMA
     Dosage: 1300 MG, UNK
     Route: 042
     Dates: start: 20030806
  5. PREDONINE [Concomitant]
     Indication: NON-HODGKIN'S LYMPHOMA
     Dosage: 100 MG, UNK
     Route: 048
     Dates: start: 20030806

REACTIONS (1)
  - OESOPHAGEAL CARCINOMA [None]
